FAERS Safety Report 19879333 (Version 1)
Quarter: 2021Q3

REPORT INFORMATION
  Report Type: Spontaneous
  Country: FR (occurrence: FR)
  Receive Date: 20210924
  Receipt Date: 20210924
  Transmission Date: 20211014
  Serious: Yes (Hospitalization)
  Sender: FDA-Public Use
  Company Number: FR-TEVA-2021-FR-1956162

PATIENT
  Age: 86 Year
  Sex: Male

DRUGS (5)
  1. LORAZEPAM. [Concomitant]
     Active Substance: LORAZEPAM
     Dosage: UNIT DOSE :1 MG ,THERAPY START DATE:ASKU ,1 SB
     Route: 048
  2. CLOPIDOGREL (BESILATE DE) [Suspect]
     Active Substance: CLOPIDOGREL BESILATE
     Indication: PERIPHERAL ARTERIAL OCCLUSIVE DISEASE
     Dosage: 75 MG ,THERAPY START DATE :ASKU
     Route: 048
     Dates: end: 20210826
  3. PARACETAMOL [Concomitant]
     Active Substance: ACETAMINOPHEN
     Dosage: THERAPY START DATE:ASKU ,UNIT DOSE :1 G  ,SB
     Route: 048
  4. SILODOSINE [Concomitant]
     Active Substance: SILODOSIN
     Dosage: 8 MILLIGRAM DAILY; 0?0?1, THERAPY START DATE  :ASKU
     Route: 048
  5. UVEDOSE 1 MILLION U.I. POUR CENT, SOLUTION BUVABLE EN GOUTTES [Concomitant]
     Dosage: 1 DOSAGE FORMS,THERAPY START DATE :ASKU
     Route: 048

REACTIONS (1)
  - Cerebral haematoma [Recovering/Resolving]

NARRATIVE: CASE EVENT DATE: 20210825
